FAERS Safety Report 23107526 (Version 1)
Quarter: 2023Q4

REPORT INFORMATION
  Report Type: Spontaneous
  Country: US (occurrence: US)
  Receive Date: 20231026
  Receipt Date: 20231026
  Transmission Date: 20240110
  Serious: Yes (Other)
  Sender: FDA-Public Use
  Company Number: US-AMGEN-USASP2023187113

PATIENT
  Sex: Male

DRUGS (1)
  1. XGEVA [Suspect]
     Active Substance: DENOSUMAB
     Indication: Prostate cancer
     Dosage: UNK
     Route: 058
     Dates: start: 2021

REACTIONS (4)
  - Jaw fracture [Unknown]
  - Osteonecrosis of jaw [Unknown]
  - Off label use [Unknown]
  - Tooth loss [Unknown]

NARRATIVE: CASE EVENT DATE: 20210101
